FAERS Safety Report 11173396 (Version 20)
Quarter: 2021Q3

REPORT INFORMATION
  Report Type: Report from Study
  Country: CA (occurrence: CA)
  Receive Date: 20150608
  Receipt Date: 20210921
  Transmission Date: 20211014
  Serious: Yes (Other)
  Sender: FDA-Public Use
  Company Number: PHHY2013CA025650

PATIENT
  Age: 40 Year
  Sex: Male
  Weight: 70 kg

DRUGS (30)
  1. XOLAIR [Suspect]
     Active Substance: OMALIZUMAB
     Dosage: UNK, UNKNOWN
     Route: 058
     Dates: start: 20140108
  2. XOLAIR [Suspect]
     Active Substance: OMALIZUMAB
     Dosage: UNK
     Route: 058
     Dates: start: 20150527
  3. XOLAIR [Suspect]
     Active Substance: OMALIZUMAB
     Dosage: UNK
     Route: 058
     Dates: start: 20160427
  4. XOLAIR [Suspect]
     Active Substance: OMALIZUMAB
     Dosage: UNK UNK, UNKNOWN
     Route: 058
     Dates: start: 20160720
  5. XOLAIR [Suspect]
     Active Substance: OMALIZUMAB
     Dosage: UNK UNK, UNKNOWN
     Route: 058
     Dates: start: 20160817
  6. XOLAIR [Suspect]
     Active Substance: OMALIZUMAB
     Dosage: UNK UNK, UNKNOWN
     Route: 058
     Dates: start: 20170105
  7. XOLAIR [Suspect]
     Active Substance: OMALIZUMAB
     Dosage: UNK UNK, UNKNOWN
     Route: 058
     Dates: start: 20170512
  8. XOLAIR [Suspect]
     Active Substance: OMALIZUMAB
     Dosage: 300 MG EVERY 4 WEEKS
     Route: 058
     Dates: start: 20180509
  9. XOLAIR [Suspect]
     Active Substance: OMALIZUMAB
     Dosage: UNK
     Route: 058
     Dates: start: 20150401
  10. XOLAIR [Suspect]
     Active Substance: OMALIZUMAB
     Dosage: UNK UNK, UNKNOWN
     Route: 058
     Dates: start: 20170131
  11. XOLAIR [Suspect]
     Active Substance: OMALIZUMAB
     Dosage: UNK
     Route: 058
     Dates: start: 20160330
  12. XOLAIR [Suspect]
     Active Substance: OMALIZUMAB
     Dosage: UNK UNK, UNKNOWN
     Route: 058
     Dates: start: 20160622
  13. METHOTREXATE. [Suspect]
     Active Substance: METHOTREXATE
     Indication: RHEUMATOID ARTHRITIS
     Dosage: UNK
     Route: 065
  14. XOLAIR [Suspect]
     Active Substance: OMALIZUMAB
     Dosage: UNK
     Route: 058
     Dates: start: 20150915
  15. SPIRIVA [Concomitant]
     Active Substance: TIOTROPIUM BROMIDE MONOHYDRATE
     Indication: PRODUCT USED FOR UNKNOWN INDICATION
     Dosage: UNK
     Route: 065
  16. XOLAIR [Suspect]
     Active Substance: OMALIZUMAB
     Indication: ASTHMA
     Dosage: 300 MG ( EVERY 4 WEEKS)
     Route: 058
     Dates: start: 20130213
  17. XOLAIR [Suspect]
     Active Substance: OMALIZUMAB
     Dosage: UNK, UNKNOWN
     Route: 058
     Dates: start: 20140529
  18. XOLAIR [Suspect]
     Active Substance: OMALIZUMAB
     Dosage: UNK UNK, UNKNOWN
     Route: 058
     Dates: start: 20170228
  19. XOLAIR [Suspect]
     Active Substance: OMALIZUMAB
     Dosage: 300 MG, EVERY 4 WEEKS
     Route: 058
     Dates: start: 20190116
  20. XOLAIR [Suspect]
     Active Substance: OMALIZUMAB
     Dosage: UNK, UNKNOWN
     Route: 058
     Dates: start: 20130703
  21. XOLAIR [Suspect]
     Active Substance: OMALIZUMAB
     Dosage: UNK
     Route: 058
     Dates: start: 20160203
  22. XOLAIR [Suspect]
     Active Substance: OMALIZUMAB
     Dosage: UNK UNK, UNKNOWN
     Route: 058
     Dates: start: 20160914
  23. XOLAIR [Suspect]
     Active Substance: OMALIZUMAB
     Dosage: UNK UNK, UNKNOWN
     Route: 058
     Dates: start: 20161206
  24. XOLAIR [Suspect]
     Active Substance: OMALIZUMAB
     Dosage: UNK, UNKNOWN
     Route: 058
     Dates: start: 20130731
  25. XOLAIR [Suspect]
     Active Substance: OMALIZUMAB
     Dosage: UNK
     Route: 058
     Dates: start: 20150304
  26. XOLAIR [Suspect]
     Active Substance: OMALIZUMAB
     Dosage: UNK UNK, UNKNOWN
     Route: 058
     Dates: start: 20161012
  27. XOLAIR [Suspect]
     Active Substance: OMALIZUMAB
     Dosage: 300 MG, QMO
     Route: 058
     Dates: start: 20130313
  28. XOLAIR [Suspect]
     Active Substance: OMALIZUMAB
     Dosage: UNK UNK, UNKNOWN
     Route: 058
     Dates: start: 20160525
  29. XOLAIR [Suspect]
     Active Substance: OMALIZUMAB
     Dosage: UNK UNK, UNKNOWN
     Route: 058
     Dates: start: 20171220
  30. SYMBICORT [Concomitant]
     Active Substance: BUDESONIDE\FORMOTEROL FUMARATE DIHYDRATE
     Indication: PRODUCT USED FOR UNKNOWN INDICATION
     Dosage: UNK
     Route: 065

REACTIONS (43)
  - Respiratory tract infection [Recovering/Resolving]
  - Rales [Unknown]
  - Back pain [Unknown]
  - Weight decreased [Unknown]
  - Cough [Unknown]
  - Nausea [Unknown]
  - Hypoventilation [Unknown]
  - Dyspnoea [Recovering/Resolving]
  - Migraine [Not Recovered/Not Resolved]
  - Haemoptysis [Unknown]
  - Cough [Recovered/Resolved]
  - Inappropriate schedule of product administration [Unknown]
  - Rheumatoid arthritis [Unknown]
  - Lower respiratory tract infection [Not Recovered/Not Resolved]
  - Blood pressure systolic increased [Unknown]
  - Sputum discoloured [Recovering/Resolving]
  - Influenza [Unknown]
  - Fatigue [Not Recovered/Not Resolved]
  - Chest discomfort [Unknown]
  - Anxiety [Unknown]
  - Asthma [Recovering/Resolving]
  - Breath sounds abnormal [Unknown]
  - Feeling abnormal [Unknown]
  - Heart rate increased [Unknown]
  - Gastroenteritis viral [Recovering/Resolving]
  - Respiratory tract congestion [Recovering/Resolving]
  - Wheezing [Not Recovered/Not Resolved]
  - Osteoarthritis [Unknown]
  - Malaise [Not Recovered/Not Resolved]
  - Oropharyngeal pain [Unknown]
  - Upper respiratory tract infection [Unknown]
  - Infection [Unknown]
  - Hypersensitivity [Unknown]
  - Abdominal discomfort [Unknown]
  - Productive cough [Recovering/Resolving]
  - Product dose omission issue [Unknown]
  - Pneumonia [Unknown]
  - Staphylococcal infection [Unknown]
  - Seasonal allergy [Unknown]
  - Nasopharyngitis [Recovering/Resolving]
  - Gait disturbance [Unknown]
  - Weight increased [Unknown]
  - Alopecia [Unknown]

NARRATIVE: CASE EVENT DATE: 20130313
